FAERS Safety Report 9005446 (Version 1)
Quarter: 2013Q1

REPORT INFORMATION
  Report Type: Spontaneous
  Country: US (occurrence: US)
  Receive Date: 20130109
  Receipt Date: 20130109
  Transmission Date: 20140127
  Serious: Yes (Death)
  Sender: FDA-Public Use
  Company Number: US-PFIZER INC-2013007419

PATIENT
  Age: 41 Year
  Sex: Male

DRUGS (5)
  1. HOMATROPINE METHYLBROMIDE\HYDROCODONE BITARTRATE [Suspect]
  2. FUROSEMIDE [Suspect]
  3. LEVOTHYROXINE SODIUM [Suspect]
  4. BENZOTROPINE [Suspect]
  5. OLANZAPINE [Suspect]

REACTIONS (2)
  - Completed suicide [Fatal]
  - Toxicity to various agents [None]
